FAERS Safety Report 13438323 (Version 1)
Quarter: 2017Q2

REPORT INFORMATION
  Report Type: Spontaneous
  Country: US (occurrence: US)
  Receive Date: 20170413
  Receipt Date: 20170413
  Transmission Date: 20170830
  Serious: Yes (Other)
  Sender: FDA-Public Use
  Company Number: US-IPSEN BIOPHARMACEUTICALS, INC.-2017-02838

PATIENT

DRUGS (2)
  1. BOTULINUM TOXIN NOS [Suspect]
     Active Substance: BOTULINUM TOXIN NOS
     Indication: OFF LABEL USE
  2. BOTULINUM TOXIN NOS [Suspect]
     Active Substance: BOTULINUM TOXIN NOS
     Indication: OESOPHAGEAL ACHALASIA
     Dosage: NOT REPORTED
     Route: 065

REACTIONS (4)
  - Off label use [Unknown]
  - Oesophageal mucosal tear [Recovered/Resolved]
  - Drug ineffective for unapproved indication [Unknown]
  - Procedural complication [None]
